FAERS Safety Report 9626979 (Version 1)
Quarter: 2013Q4

REPORT INFORMATION
  Report Type: Spontaneous
  Country: SE (occurrence: SE)
  Receive Date: 20131016
  Receipt Date: 20131016
  Transmission Date: 20140711
  Serious: Yes (Other)
  Sender: FDA-Public Use
  Company Number: SE-MERCK-1310SWE006585

PATIENT
  Age: 31 Year
  Sex: Male

DRUGS (15)
  1. NOXAFIL [Suspect]
     Indication: ASPERGILLUS INFECTION
     Dosage: UNK
     Route: 048
     Dates: start: 201304
  2. KREON [Concomitant]
     Dosage: 25000 GASTRORESISTANT CAPSULE
     Route: 048
  3. NASONEX [Concomitant]
     Dosage: 50 MICROGRAM DOSE
  4. SODIUM CHLORIDE [Concomitant]
     Dosage: 9 MG/ML
  5. SEREVENT DISKUS [Concomitant]
     Dosage: 50 MICROGRAM/DOSE PRE-DISPENSED
  6. VENTOLINE (ALBUTEROL SULFATE) [Concomitant]
     Dosage: 0.2 MG/DOSE
  7. URSOFALK [Concomitant]
     Route: 048
  8. ADDEX NATRIUMKLORID [Concomitant]
     Dosage: 4 MMOL/ML
  9. CYKLOKAPRON [Concomitant]
     Route: 048
  10. BISOLVON [Concomitant]
     Route: 048
  11. WATER, STERILE [Concomitant]
     Route: 051
  12. HEPARINE LEO [Concomitant]
     Dosage: 100 IU/ML
  13. ACETYLCYSTEINE [Concomitant]
     Route: 048
  14. VISCOTEARS [Concomitant]
     Dosage: 2 MG/G
  15. DIVISUN [Concomitant]
     Route: 048

REACTIONS (1)
  - Bacterial infection [Unknown]
